FAERS Safety Report 12661076 (Version 2)
Quarter: 2016Q3

REPORT INFORMATION
  Report Type: Spontaneous
  Country: US (occurrence: US)
  Receive Date: 20160817
  Receipt Date: 20160901
  Transmission Date: 20161109
  Serious: No
  Sender: FDA-Public Use
  Company Number: US-RELYPSA-RLY2016000574

PATIENT
  Age: 49 Year
  Sex: Female

DRUGS (16)
  1. TRADJENTA [Concomitant]
     Active Substance: LINAGLIPTIN
  2. INSULIN [Concomitant]
     Active Substance: INSULIN NOS
  3. CARVEDILOL. [Concomitant]
     Active Substance: CARVEDILOL
  4. FISH OIL [Concomitant]
     Active Substance: FISH OIL
  5. LEVOTHYROXINE. [Concomitant]
     Active Substance: LEVOTHYROXINE
  6. CYCLOSPORINE. [Concomitant]
     Active Substance: CYCLOSPORINE
  7. VALSARTAN. [Concomitant]
     Active Substance: VALSARTAN
  8. CRESTOR [Concomitant]
     Active Substance: ROSUVASTATIN CALCIUM
  9. ALLOPURINOL. [Concomitant]
     Active Substance: ALLOPURINOL
  10. VELTASSA [Suspect]
     Active Substance: PATIROMER
     Indication: HYPERKALAEMIA
     Dosage: 8.4 G, QD
     Route: 048
     Dates: start: 20160427
  11. ASPIRIN                            /00002701/ [Concomitant]
     Active Substance: ASPIRIN
  12. FUROSEMIDE. [Concomitant]
     Active Substance: FUROSEMIDE
  13. SODIUM BICARBONATE. [Concomitant]
     Active Substance: SODIUM BICARBONATE
  14. GLIPIZIDE. [Concomitant]
     Active Substance: GLIPIZIDE
  15. AMLODIPINE [Concomitant]
     Active Substance: AMLODIPINE BESYLATE
  16. SPRINTEC [Concomitant]
     Active Substance: ETHINYL ESTRADIOL\NORGESTIMATE

REACTIONS (2)
  - Dizziness [Recovered/Resolved]
  - Wrong technique in product usage process [Recovered/Resolved]

NARRATIVE: CASE EVENT DATE: 20160427
